FAERS Safety Report 7888464-2 (Version None)
Quarter: 2011Q4

REPORT INFORMATION
  Report Type: 
  Country: None (occurrence: None)
  Receive Date: 20111103
  Receipt Date: 20111028
  Transmission Date: 20120403
  Serious: Yes (Other)
  Sender: FDA-Public Use
  Company Number: PHEH2011US08108

PATIENT
  Sex: Female

DRUGS (8)
  1. MULTI-VITAMIN [Concomitant]
  2. METFORMIN HCL [Concomitant]
  3. ASPIRIN [Concomitant]
  4. RECLAST [Suspect]
     Route: 042
     Dates: start: 20100301
  5. SIMVASTATIN [Concomitant]
  6. EXELON [Concomitant]
  7. GABAPENTIN [Concomitant]
  8. CARBIDOPA + LEVODOPA [Concomitant]

REACTIONS (3)
  - TOOTH INFECTION [None]
  - CYSTITIS [None]
  - TOOTH FRACTURE [None]
